FAERS Safety Report 10366614 (Version 1)
Quarter: 2014Q3

REPORT INFORMATION
  Report Type: Spontaneous
  Country: SE (occurrence: SE)
  Receive Date: 20140806
  Receipt Date: 20140806
  Transmission Date: 20150326
  Serious: Yes (Other)
  Sender: FDA-Public Use
  Company Number: SE-PFIZER INC-2014215595

PATIENT
  Age: 72 Year
  Sex: Female

DRUGS (12)
  1. ENALAPRIL COMP SANDOZ [Concomitant]
     Active Substance: ENALAPRIL
     Dosage: 20 MG/12.5 MG, UNK
  2. METOPROLOL ^RATIOPHARM^ [Concomitant]
     Dosage: 100 MG, UNK
  3. CANODERM LIPID [Concomitant]
     Dosage: UNK
  4. WARAN [Interacting]
     Active Substance: WARFARIN SODIUM
     Indication: ATRIAL FIBRILLATION
     Dosage: 2.5 MG, UNK
     Dates: start: 20130916
  5. DAKTACORT [Concomitant]
     Active Substance: HYDROCORTISONE\MICONAZOLE NITRATE
     Dosage: 20 MG/G + 10 MG/G
  6. SOBRIL [Concomitant]
     Active Substance: OXAZEPAM
     Dosage: 15 MG, UNK
  7. LEVAXIN [Concomitant]
     Active Substance: LEVOTHYROXINE SODIUM
     Dosage: 125 UG, UNK
  8. AMLODIPINE [Concomitant]
     Active Substance: AMLODIPINE BESYLATE
     Dosage: 5 MG, UNK
  9. FURIX [Concomitant]
     Active Substance: FUROSEMIDE
     Dosage: 40 MG, UNK
  10. NAPROXEN BMM PHARMA [Concomitant]
     Dosage: 500 MG, UNK
  11. DALACIN [Suspect]
     Active Substance: CLINDAMYCIN\CLINDAMYCIN PHOSPHATE
     Indication: ERYSIPELAS
     Dosage: 300 MG, 3X/DAY
     Route: 048
     Dates: start: 20140617
  12. BEHEPAN [Concomitant]
     Active Substance: HYDROXOCOBALAMIN
     Dosage: 1 MG, UNK

REACTIONS (2)
  - Drug interaction [Recovered/Resolved]
  - International normalised ratio increased [Recovered/Resolved]

NARRATIVE: CASE EVENT DATE: 20140624
